FAERS Safety Report 26189753 (Version 1)
Quarter: 2025Q4

REPORT INFORMATION
  Report Type: Spontaneous
  Country: US (occurrence: US)
  Receive Date: 20251223
  Receipt Date: 20251223
  Transmission Date: 20260118
  Serious: No
  Sender: ELI LILLY AND COMPANY
  Company Number: US-ELI_LILLY_AND_COMPANY-US202512020184

PATIENT
  Age: 68 Year
  Sex: Male

DRUGS (6)
  1. KISUNLA [Suspect]
     Active Substance: DONANEMAB-AZBT
     Indication: Dementia Alzheimer^s type
     Dosage: UNK, UNKNOWN (1ST INFUSION)
     Route: 042
     Dates: start: 20250422
  2. KISUNLA [Suspect]
     Active Substance: DONANEMAB-AZBT
     Dosage: UNK, UNKNOWN (2ND INFUSION)
     Route: 042
     Dates: start: 20250520
  3. KISUNLA [Suspect]
     Active Substance: DONANEMAB-AZBT
     Dosage: UNK, UNKNOWN (3RD INFUSION)
     Route: 042
     Dates: start: 20250715
  4. KISUNLA [Suspect]
     Active Substance: DONANEMAB-AZBT
     Dosage: UNK, UNKNOWN (4TH INFUSION)
     Route: 042
     Dates: start: 20250812
  5. KISUNLA [Suspect]
     Active Substance: DONANEMAB-AZBT
     Dosage: UNK, UNKNOWN (5TH INFUSION)
     Route: 042
     Dates: start: 20251027
  6. KISUNLA [Suspect]
     Active Substance: DONANEMAB-AZBT
     Dosage: 1400 MG, UNKNOWN (6TH INFUSION)
     Route: 042
     Dates: start: 20251124

REACTIONS (7)
  - Abdominal discomfort [Recovered/Resolved]
  - Head discomfort [Recovered/Resolved]
  - Cold sweat [Recovered/Resolved]
  - Blood pressure increased [Recovered/Resolved]
  - Erythema [Recovered/Resolved]
  - Vomiting [Recovered/Resolved]
  - Hyperhidrosis [Recovered/Resolved]

NARRATIVE: CASE EVENT DATE: 20251124
